FAERS Safety Report 7989467 (Version 3)
Quarter: 2014Q3

REPORT INFORMATION
  Report Type: Spontaneous
  Country: DE (occurrence: DE)
  Receive Date: 20110614
  Receipt Date: 20140729
  Transmission Date: 20150326
  Serious: Yes (Life-Threatening, Hospitalization, Other)
  Sender: FDA-Public Use
  Company Number: DE-RANBAXY-2011RR-45264

PATIENT
  Age: 70 Year
  Sex: Male
  Weight: 77 kg

DRUGS (8)
  1. GENTAMICIN-RATIOPHARM, 80 MG, AMP [Suspect]
     Active Substance: GENTAMICIN
     Indication: ENDOCARDITIS
     Dosage: UNK
     Route: 042
     Dates: start: 20110103, end: 20110119
  2. FENISTIL, 1 MG, NOVARTIS [Concomitant]
     Indication: PRODUCT USED FOR UNKNOWN INDICATION
     Dosage: UNK
     Route: 048
     Dates: start: 20110108, end: 20110118
  3. FRAXIPARIN, 0.3 ML, AMP, GSK [Concomitant]
     Indication: PRODUCT USED FOR UNKNOWN INDICATION
     Dosage: 2850 IU, QD
     Route: 058
     Dates: start: 20110104, end: 20110118
  4. ZINACEF [Suspect]
     Active Substance: CEFUROXIME SODIUM
     Indication: ENDOCARDITIS
     Dosage: 1.5-3 G DAILY
     Route: 042
     Dates: start: 20110113, end: 20110119
  5. RAMIPRIL. [Suspect]
     Active Substance: RAMIPRIL
     Indication: PRODUCT USED FOR UNKNOWN INDICATION
     Dosage: 2.5 MG, QD
     Route: 049
     Dates: start: 201002, end: 20110119
  6. MIDAZOLAM, AMP [Concomitant]
     Indication: PRODUCT USED FOR UNKNOWN INDICATION
     Dosage: UNK
     Route: 042
     Dates: start: 20110102, end: 20110113
  7. PROTAPHANE [Concomitant]
     Active Substance: INSULIN HUMAN
     Indication: PRODUCT USED FOR UNKNOWN INDICATION
     Dosage: UNK
     Route: 058
     Dates: start: 1995
  8. SOBELIN, 600 MG, AMP, PFIZER [Concomitant]
     Indication: PRODUCT USED FOR UNKNOWN INDICATION
     Dosage: UNK
     Route: 042
     Dates: start: 20110109, end: 20110113

REACTIONS (2)
  - Renal failure acute [Recovering/Resolving]
  - Drug interaction [Recovering/Resolving]

NARRATIVE: CASE EVENT DATE: 20110119
